FAERS Safety Report 25992889 (Version 1)
Quarter: 2025Q4

REPORT INFORMATION
  Report Type: Report from Study
  Country: IL (occurrence: IL)
  Receive Date: 20251103
  Receipt Date: 20251103
  Transmission Date: 20260117
  Serious: Yes (Death)
  Sender: ABBVIE
  Company Number: IL-ABBVIE-6529263

PATIENT
  Age: 78 Year
  Sex: Male

DRUGS (3)
  1. CARBIDOPA\LEVODOPA [Suspect]
     Active Substance: CARBIDOPA\LEVODOPA
     Indication: Parkinson^s disease
     Dosage: MORNING DOSAGE(ML):  6.0?ADDITIONAL TUBE FILING (ML): 3.0?CONTINUOUS DOSAGE (ML/H):  3.5?EXTRA DO...
     Route: 050
     Dates: start: 20231129, end: 20231129
  2. CARBIDOPA\LEVODOPA [Suspect]
     Active Substance: CARBIDOPA\LEVODOPA
     Dosage: MORNING DOSAGE(ML):  6.0?ADDITIONAL TUBE FILING (ML): 3.0?CONTINUOUS DOSAGE (ML/H):  3.3?EXTRA DO...
     Route: 050
     Dates: start: 20230918, end: 20230927
  3. CARBIDOPA\LEVODOPA [Suspect]
     Active Substance: CARBIDOPA\LEVODOPA
     Route: 050
     Dates: start: 20230919

REACTIONS (1)
  - Death [Fatal]

NARRATIVE: CASE EVENT DATE: 20251102
